FAERS Safety Report 15509706 (Version 3)
Quarter: 2019Q2

REPORT INFORMATION
  Report Type: Spontaneous
  Country: JP (occurrence: JP)
  Receive Date: 20181016
  Receipt Date: 20190607
  Transmission Date: 20190711
  Serious: Yes (Hospitalization, Other)
  Sender: FDA-Public Use
  Company Number: JP-SANIK-2018SA280394AA

PATIENT
  Age: 72 Year
  Sex: Male
  Weight: 65 kg

DRUGS (4)
  1. PLAVIX [Suspect]
     Active Substance: CLOPIDOGREL BISULFATE
     Indication: ANGINA PECTORIS
     Dosage: 75 MG, QD
     Route: 048
     Dates: start: 20160413, end: 20171217
  2. RENIVACE [Concomitant]
     Active Substance: ENALAPRIL
     Indication: ANGINA PECTORIS
     Dosage: 5 MG, QD
     Route: 048
     Dates: start: 20151229, end: 20171226
  3. BAYASPIRIN [Concomitant]
     Active Substance: ASPIRIN
     Indication: ANGINA PECTORIS
     Dosage: 100 MG, QD
     Route: 048
     Dates: start: 20160217
  4. SIGMART [Concomitant]
     Active Substance: NICORANDIL
     Indication: ANGINA PECTORIS
     Dosage: 5 MG, TID
     Route: 048
     Dates: start: 20151230

REACTIONS (6)
  - Acquired haemophilia [Recovering/Resolving]
  - Muscle haemorrhage [Recovering/Resolving]
  - Purpura [Recovering/Resolving]
  - Pyrexia [Recovering/Resolving]
  - Oedema peripheral [Recovering/Resolving]
  - Activated partial thromboplastin time prolonged [Recovering/Resolving]

NARRATIVE: CASE EVENT DATE: 20171204
